FAERS Safety Report 5711081-7 (Version None)
Quarter: 2008Q2

REPORT INFORMATION
  Report Type: 
  Country: None (occurrence: None)
  Receive Date: 20080415
  Receipt Date: 20080402
  Transmission Date: 20081010
  Serious: Yes (Death, Hospitalization)
  Sender: FDA-Public Use
  Company Number: GXKR2008JP03311

PATIENT
  Age: 15 Year
  Sex: Female

DRUGS (1)
  1. PREDNISOLONE [Suspect]
     Indication: GRAFT VERSUS HOST DISEASE
     Dosage: 60 MG, QD, ORAL
     Route: 048
     Dates: start: 20050101

REACTIONS (4)
  - MUCORMYCOSIS [None]
  - PLEURAL EFFUSION [None]
  - PNEUMONIA CYTOMEGALOVIRAL [None]
  - PULMONARY CAVITATION [None]
